FAERS Safety Report 24727542 (Version 1)
Quarter: 2024Q4

REPORT INFORMATION
  Report Type: Spontaneous
  Country: CN (occurrence: CN)
  Receive Date: 20241212
  Receipt Date: 20241212
  Transmission Date: 20250115
  Serious: Yes (Other)
  Sender: PFIZER
  Company Number: CN-PFIZER INC-PV202400157886

PATIENT
  Age: 58 Year
  Sex: Female
  Weight: 66.9 kg

DRUGS (4)
  1. PACLITAXEL [Suspect]
     Active Substance: PACLITAXEL
     Indication: Neoplasm malignant
     Dosage: 240 MG, 1X/DAY
     Route: 041
     Dates: start: 20210414, end: 20210414
  2. DEXAMETHASONE ACETATE [Concomitant]
     Active Substance: DEXAMETHASONE ACETATE
     Dosage: 10 MG, ST
     Route: 048
     Dates: start: 20210413, end: 20210413
  3. CIMETIDINE [Concomitant]
     Active Substance: CIMETIDINE
     Dosage: 0.4 G, ST
     Route: 042
     Dates: start: 20210413, end: 20210413
  4. DIPHENHYDRAMINE HYDROCHLORIDE [Concomitant]
     Active Substance: DIPHENHYDRAMINE HYDROCHLORIDE
     Dosage: 20 MG, ST
     Route: 030
     Dates: start: 20210413, end: 20210413

REACTIONS (6)
  - Hypersensitivity [Recovering/Resolving]
  - Chest discomfort [Recovering/Resolving]
  - Dyspnoea [Recovering/Resolving]
  - Flushing [Recovering/Resolving]
  - Tachypnoea [Recovering/Resolving]
  - Off label use [Unknown]

NARRATIVE: CASE EVENT DATE: 20210414
